FAERS Safety Report 13296238 (Version 2)
Quarter: 2017Q1

REPORT INFORMATION
  Report Type: Spontaneous
  Country: US (occurrence: US)
  Receive Date: 20170304
  Receipt Date: 20170329
  Transmission Date: 20170428
  Serious: No
  Sender: FDA-Public Use
  Company Number: PHEH2017US006311

PATIENT
  Sex: Female
  Weight: 86 kg

DRUGS (1)
  1. TAFINLAR [Suspect]
     Active Substance: DABRAFENIB MESYLATE
     Indication: THYROID CANCER
     Dosage: 300 MG, BID
     Route: 048
     Dates: start: 20150511

REACTIONS (2)
  - Product use issue [Unknown]
  - Madarosis [Unknown]
